FAERS Safety Report 11080475 (Version 4)
Quarter: 2016Q1

REPORT INFORMATION
  Report Type: Report from Study
  Country: US (occurrence: US)
  Receive Date: 20150430
  Receipt Date: 20160120
  Transmission Date: 20160525
  Serious: Yes (Hospitalization, Other)
  Sender: FDA-Public Use
  Company Number: US-AMGEN-USASL2015041593

PATIENT
  Age: 62 Year
  Sex: Female

DRUGS (1)
  1. ENBREL [Suspect]
     Active Substance: ETANERCEPT
     Indication: RHEUMATOID ARTHRITIS
     Dosage: UNK UNK, QWK
     Route: 065
     Dates: start: 20070401

REACTIONS (12)
  - Rib fracture [Not Recovered/Not Resolved]
  - Fall [Unknown]
  - Acute lung injury [Not Recovered/Not Resolved]
  - Skull fracture [Unknown]
  - Dizziness [Unknown]
  - Clavicle fracture [Not Recovered/Not Resolved]
  - Confusional state [Unknown]
  - Tympanic membrane perforation [Not Recovered/Not Resolved]
  - Wrist surgery [Unknown]
  - Upper limb fracture [Not Recovered/Not Resolved]
  - Fracture delayed union [Not Recovered/Not Resolved]
  - Gait disturbance [Unknown]

NARRATIVE: CASE EVENT DATE: 2015
